FAERS Safety Report 21286712 (Version 1)
Quarter: 2022Q3

REPORT INFORMATION
  Report Type: Spontaneous
  Country: IR (occurrence: IR)
  Receive Date: 20220902
  Receipt Date: 20220902
  Transmission Date: 20221026
  Serious: Yes (Death, Hospitalization, Other)
  Sender: FDA-Public Use
  Company Number: IR-PFIZER INC-PV202200049224

PATIENT
  Age: 7 Year
  Sex: Female

DRUGS (8)
  1. CYTARABINE [Suspect]
     Active Substance: CYTARABINE
     Indication: Acute myeloid leukaemia
     Dosage: 300 MG/M2, CYCLIC (LOADING DOSE DAY 1 AND 2)
     Dates: start: 20201007
  2. CYTARABINE [Suspect]
     Active Substance: CYTARABINE
     Dosage: 150 MG/M2, CYCLIC (FROM DAY 3)
  3. IDARUBICIN HYDROCHLORIDE [Suspect]
     Active Substance: IDARUBICIN HYDROCHLORIDE
     Indication: Acute myeloid leukaemia
     Dosage: 0.5 MG/KG, CYCLIC (DAY 3, 5, AND 7)
     Dates: start: 20201007
  4. ETOPOSIDE [Suspect]
     Active Substance: ETOPOSIDE
     Indication: Acute myeloid leukaemia
     Dosage: UNK
     Dates: start: 20201007
  5. DEXAMETHASONE [Suspect]
     Active Substance: DEXAMETHASONE
     Indication: Acute myeloid leukaemia
     Dosage: 1.5 MG/8 H
     Dates: start: 20201007
  6. AMPHOTERICIN B [Suspect]
     Active Substance: AMPHOTERICIN B
     Indication: Antifungal prophylaxis
     Dosage: 2.5  MG/KG EVERY OTHER DAY
     Dates: start: 20201007
  7. SULFAMETHOXAZOLE\TRIMETHOPRIM [Concomitant]
     Active Substance: SULFAMETHOXAZOLE\TRIMETHOPRIM
     Indication: Antifungal prophylaxis
     Dosage: 2.5 MG/KG, CYCLIC (TWICE/DAY THREE TIMES/WEEK)
     Dates: start: 20201007
  8. CIPROFLOXACIN [Concomitant]
     Active Substance: CIPROFLOXACIN
     Indication: Prophylaxis
     Dosage: UNK

REACTIONS (2)
  - Neutropenic colitis [Fatal]
  - Mucormycosis [Fatal]
